FAERS Safety Report 10415525 (Version 1)
Quarter: 2014Q3

REPORT INFORMATION
  Report Type: Spontaneous
  Country: US (occurrence: None)
  Receive Date: 20140827
  Receipt Date: 20140827
  Transmission Date: 20150326
  Serious: Yes (Hospitalization)
  Sender: FDA-Public Use
  Company Number: None

PATIENT
  Age: 62 Year
  Sex: Female
  Weight: 54.3 kg

DRUGS (9)
  1. RIBAVRIN TABLETS [Suspect]
     Active Substance: RIBAVIRIN
     Indication: HEPATITIS C
     Route: 048
     Dates: start: 20140116
  2. SOFOSBUVIR [Suspect]
     Active Substance: SOFOSBUVIR
     Indication: HEPATITIS C
     Route: 048
     Dates: start: 20140116
  3. ASCORBIC ACIDE (VIT C) [Concomitant]
  4. SPIRONOLACTONE. [Concomitant]
     Active Substance: SPIRONOLACTONE
  5. FOLIC ACID. [Concomitant]
     Active Substance: FOLIC ACID
  6. POLYCARBOPHIL [Concomitant]
     Active Substance: POLYCARBOPHIL
  7. RIFAXIMIN [Concomitant]
     Active Substance: RIFAXIMIN
  8. PYRIDOXINE (B-6) [Concomitant]
  9. MULTIVITAMIN WITH MINERALS [Concomitant]
     Active Substance: MINERALS\VITAMINS

REACTIONS (11)
  - Escherichia infection [None]
  - Pulmonary oedema [None]
  - Malnutrition [None]
  - Perinephric abscess [None]
  - Peritonitis bacterial [None]
  - Hepatic encephalopathy [None]
  - Sepsis [None]
  - Pleural effusion [None]
  - Pneumonia [None]
  - Respiratory distress [None]
  - Atelectasis [None]

NARRATIVE: CASE EVENT DATE: 20140714
